FAERS Safety Report 19579751 (Version 1)
Quarter: 2021Q3

REPORT INFORMATION
  Report Type: Spontaneous
  Country: US (occurrence: US)
  Receive Date: 20210719
  Receipt Date: 20210719
  Transmission Date: 20211014
  Serious: Yes (Hospitalization, Other)
  Sender: FDA-Public Use
  Company Number: US-009507513-2107USA004400

PATIENT
  Age: 79 Year
  Sex: Male
  Weight: 80.73 kg

DRUGS (1)
  1. KEYTRUDA [Suspect]
     Active Substance: PEMBROLIZUMAB
     Indication: BRAIN NEOPLASM
     Dosage: INJ 100 MG; ROUTE OF ADMINISTRATION: INFUSION.
     Dates: start: 20210712

REACTIONS (5)
  - Muscle twitching [Not Recovered/Not Resolved]
  - Vomiting [Not Recovered/Not Resolved]
  - Product use in unapproved indication [Unknown]
  - Unresponsive to stimuli [Not Recovered/Not Resolved]
  - Musculoskeletal stiffness [Not Recovered/Not Resolved]

NARRATIVE: CASE EVENT DATE: 20210712
